FAERS Safety Report 8875714 (Version 1)
Quarter: 2012Q4

REPORT INFORMATION
  Report Type: 
  Country: US (occurrence: US)
  Receive Date: 20121030
  Receipt Date: 20121030
  Transmission Date: 20130627
  Serious: Yes (Other)
  Sender: FDA-Public Use
  Company Number: US-ROCHE-789922

PATIENT
  Age: 37 None
  Sex: Male
  Weight: 79.45 kg

DRUGS (3)
  1. ACCUTANE [Suspect]
     Indication: ACNE
     Route: 065
     Dates: start: 1997, end: 1999
  2. CANNABIS SATIVA SUBSP. INDICA TOP [Concomitant]
     Route: 065
     Dates: start: 1997, end: 1999
  3. RETIN-A [Concomitant]
     Indication: ACNE

REACTIONS (10)
  - Crohn^s disease [Unknown]
  - Inflammatory bowel disease [Unknown]
  - Emotional distress [Not Recovered/Not Resolved]
  - Depression [Not Recovered/Not Resolved]
  - Suicidal ideation [Not Recovered/Not Resolved]
  - Colitis ulcerative [Unknown]
  - Panic attack [Unknown]
  - Large intestine polyp [Unknown]
  - Suicide attempt [Unknown]
  - Irritable bowel syndrome [Unknown]
